FAERS Safety Report 17258228 (Version 1)
Quarter: 2020Q1

REPORT INFORMATION
  Report Type: Spontaneous
  Country: US (occurrence: US)
  Receive Date: 20200110
  Receipt Date: 20200110
  Transmission Date: 20200409
  Serious: Yes (Hospitalization)
  Sender: FDA-Public Use
  Company Number: US-ARBOR PHARMACEUTICALS, LLC-US-2020ARB000019

PATIENT
  Sex: Female
  Weight: 120 kg

DRUGS (3)
  1. DIPHENHYDRAMINE. [Concomitant]
     Active Substance: DIPHENHYDRAMINE
     Indication: PAIN
     Dosage: 1 MG, TID
     Dates: start: 20190813
  2. THYRONINE [Concomitant]
     Indication: HIV INFECTION
     Dosage: 100-12 MG
     Dates: start: 20190813
  3. SKLICE [Suspect]
     Active Substance: IVERMECTIN
     Indication: WOUND
     Dosage: 150 MG, TID
     Dates: start: 20190813

REACTIONS (2)
  - Malaise [Not Recovered/Not Resolved]
  - Off label use [Unknown]

NARRATIVE: CASE EVENT DATE: 20190813
